FAERS Safety Report 15877972 (Version 2)
Quarter: 2022Q2

REPORT INFORMATION
  Report Type: Other
  Country: GB (occurrence: GB)
  Receive Date: 20190128
  Receipt Date: 20220603
  Transmission Date: 20220721
  Serious: Yes (Hospitalization, Other)
  Sender: FDA-Public Use
  Company Number: None

PATIENT
  Age: 78 Year
  Sex: Male

DRUGS (17)
  1. RANITIDINE [Suspect]
     Active Substance: RANITIDINE
     Indication: Product used for unknown indication
     Dosage: 150 MILLIGRAM
     Route: 048
  2. DOXAZOSIN MESYLATE [Suspect]
     Active Substance: DOXAZOSIN MESYLATE
     Indication: Product used for unknown indication
     Dosage: 8 MG, BID
     Route: 048
  3. ALLOPURINOL [Suspect]
     Active Substance: ALLOPURINOL
     Indication: Product used for unknown indication
     Dosage: 100 MG, QD
     Route: 048
     Dates: start: 201809
  4. ALBUTEROL [Suspect]
     Active Substance: ALBUTEROL
     Indication: Product used for unknown indication
     Dosage: 2 DOSAGE FORM (1-2 PUFF)
     Route: 055
  5. LINAGLIPTIN [Suspect]
     Active Substance: LINAGLIPTIN
     Indication: Product used for unknown indication
     Dosage: 5 MILLIGRAM, QD
     Route: 048
  6. BUMETANIDE [Suspect]
     Active Substance: BUMETANIDE
     Indication: Product used for unknown indication
     Dosage: 3 MILLIGRAM, QD
     Route: 048
     Dates: start: 201809
  7. TIOTROPIUM BROMIDE [Suspect]
     Active Substance: TIOTROPIUM BROMIDE
     Indication: Product used for unknown indication
     Dosage: 10 MICROGRAM, QD
     Route: 055
  8. BISOPROLOL [Suspect]
     Active Substance: BISOPROLOL
     Indication: Product used for unknown indication
     Dosage: 2.5 MILLIGRAM
     Route: 048
  9. SYMBICORT [Suspect]
     Active Substance: BUDESONIDE\FORMOTEROL FUMARATE DIHYDRATE
     Indication: Product used for unknown indication
     Dosage: 2 DF, BID (2 PUFF, BID) TURBOHALER
     Route: 055
  10. ASPIRIN [Suspect]
     Active Substance: ASPIRIN
     Indication: Product used for unknown indication
     Dosage: 75 MILLIGRAM
     Route: 048
  11. METFORMIN [Suspect]
     Active Substance: METFORMIN HYDROCHLORIDE
     Indication: Product used for unknown indication
     Dosage: 500 MG, UNKNOWN
     Route: 048
  12. ATORVASTATIN [Suspect]
     Active Substance: ATORVASTATIN
     Indication: Product used for unknown indication
     Dosage: 40 MG, UNKNOWN
     Route: 048
  13. ASCIMINIB [Suspect]
     Active Substance: ASCIMINIB
     Indication: Chronic myeloid leukaemia
     Dosage: 40 MG, BID
     Route: 048
     Dates: start: 20180924
  14. ASCIMINIB [Suspect]
     Active Substance: ASCIMINIB
     Dosage: 40 MG, QOD
     Route: 048
  15. ASCIMINIB [Suspect]
     Active Substance: ASCIMINIB
     Dosage: UNK
     Route: 065
  16. DULOXETINE [Suspect]
     Active Substance: DULOXETINE
     Indication: Product used for unknown indication
     Dosage: UNK
     Route: 048
  17. BENDROFLUMETHIAZIDE [Suspect]
     Active Substance: BENDROFLUMETHIAZIDE
     Indication: Product used for unknown indication
     Dosage: 2.5 MG, QD
     Route: 048
     Dates: start: 201809

REACTIONS (1)
  - Renal failure [Recovered/Resolved]

NARRATIVE: CASE EVENT DATE: 20180927
